FAERS Safety Report 10196243 (Version 1)
Quarter: 2014Q2

REPORT INFORMATION
  Report Type: Spontaneous
  Country: US (occurrence: US)
  Receive Date: 20140527
  Receipt Date: 20140527
  Transmission Date: 20141212
  Serious: No
  Sender: FDA-Public Use
  Company Number: US-JNJFOC-20140515253

PATIENT
  Age: 30 Year
  Sex: Female
  Weight: 52.16 kg

DRUGS (6)
  1. INVEGA SUSTENNA [Suspect]
     Indication: DELUSION
     Route: 030
     Dates: start: 20140515
  2. BUSPAR [Concomitant]
     Indication: ANXIETY
     Route: 048
     Dates: start: 2014
  3. KEPPRA [Concomitant]
     Indication: CONVULSION
     Route: 048
     Dates: start: 2013
  4. LAMICTAL [Concomitant]
     Indication: AFFECTIVE DISORDER
     Route: 048
     Dates: start: 201404
  5. LITHOBID [Concomitant]
     Indication: AFFECTIVE DISORDER
     Route: 048
     Dates: start: 201404
  6. ADVIL [Concomitant]
     Indication: PAIN
     Route: 065

REACTIONS (3)
  - Musculoskeletal stiffness [Not Recovered/Not Resolved]
  - Discomfort [Not Recovered/Not Resolved]
  - Drug dose omission [Unknown]
